FAERS Safety Report 13877895 (Version 2)
Quarter: 2017Q3

REPORT INFORMATION
  Report Type: Spontaneous
  Country: CA (occurrence: CA)
  Receive Date: 20170817
  Receipt Date: 20170822
  Transmission Date: 20171127
  Serious: Yes (Life-Threatening, Hospitalization, Other)
  Sender: FDA-Public Use
  Company Number: PHHY2017CA121189

PATIENT
  Age: 49 Year
  Sex: Female

DRUGS (5)
  1. AMLODIPINE [Suspect]
     Active Substance: AMLODIPINE BESYLATE
     Indication: PRODUCT USED FOR UNKNOWN INDICATION
     Dosage: 150 MG
     Route: 065
  2. POTASSIUM CHLORIDE. [Concomitant]
     Active Substance: POTASSIUM CHLORIDE
     Indication: HYPOKALAEMIA
     Route: 042
  3. RISPERIDONE. [Concomitant]
     Active Substance: RISPERIDONE
     Indication: PRODUCT USED FOR UNKNOWN INDICATION
     Dosage: 6 MG, UNK
     Route: 065
  4. ESCITALOPRAM [Concomitant]
     Active Substance: ESCITALOPRAM OXALATE
     Indication: PRODUCT USED FOR UNKNOWN INDICATION
     Dosage: 60 MG, UNK
     Route: 065
  5. POTASSIUM CHLORIDE. [Concomitant]
     Active Substance: POTASSIUM CHLORIDE
     Dosage: UNK
     Route: 048

REACTIONS (13)
  - Cytotoxic oedema [Unknown]
  - Optic atrophy [Unknown]
  - Anuria [Recovering/Resolving]
  - Visual impairment [Unknown]
  - Depressed level of consciousness [Unknown]
  - Hypotension [Unknown]
  - Intentional overdose [Recovering/Resolving]
  - Tachycardia [Unknown]
  - Condition aggravated [Unknown]
  - Retinal ischaemia [Unknown]
  - Embolism arterial [Unknown]
  - Pulmonary oedema [Recovering/Resolving]
  - Blindness cortical [Unknown]
